FAERS Safety Report 19013683 (Version 1)
Quarter: 2021Q1

REPORT INFORMATION
  Report Type: Spontaneous
  Country: US (occurrence: US)
  Receive Date: 20210316
  Receipt Date: 20210316
  Transmission Date: 20210420
  Serious: Yes (Other)
  Sender: FDA-Public Use
  Company Number: US-BAYER-2021-102703

PATIENT
  Age: 58 Year
  Sex: Male

DRUGS (1)
  1. VITRAKVI [Suspect]
     Active Substance: LAROTRECTINIB
     Indication: HEAD AND NECK CANCER METASTATIC
     Dosage: 100 MG, BID
     Dates: start: 20200802

REACTIONS (7)
  - Aspartate aminotransferase increased [Recovering/Resolving]
  - Renal impairment [Recovering/Resolving]
  - Alanine aminotransferase increased [Recovering/Resolving]
  - Dizziness [Recovered/Resolved with Sequelae]
  - Blister [Recovering/Resolving]
  - Gait disturbance [Recovered/Resolved with Sequelae]
  - Self-injurious ideation [Recovered/Resolved with Sequelae]

NARRATIVE: CASE EVENT DATE: 20200802
